FAERS Safety Report 15544976 (Version 2)
Quarter: 2018Q4

REPORT INFORMATION
  Report Type: Report from Study
  Country: None (occurrence: CA)
  Receive Date: 20181024
  Receipt Date: 20181025
  Transmission Date: 20190205
  Serious: Yes (Disabling)
  Sender: FDA-Public Use
  Company Number: CA-ABBVIE-18S-028-2527136-00

PATIENT
  Sex: Male
  Weight: 99.88 kg

DRUGS (1)
  1. LUPRON DEPOT [Suspect]
     Active Substance: LEUPROLIDE ACETATE
     Indication: PROSTATE CANCER
     Route: 030
     Dates: start: 20161018

REACTIONS (2)
  - Mobility decreased [Unknown]
  - Dementia [Unknown]

NARRATIVE: CASE EVENT DATE: 2018
